FAERS Safety Report 4925456-7 (Version None)
Quarter: 2006Q1

REPORT INFORMATION
  Report Type: 
  Country: None (occurrence: None)
  Receive Date: 20060228
  Receipt Date: 20050223
  Transmission Date: 20060701
  Serious: No
  Sender: FDA-Public Use
  Company Number: US-GLAXOSMITHKLINE-A0546945A

PATIENT
  Sex: Female

DRUGS (3)
  1. LAMICTAL [Suspect]
     Dosage: 450MG TWICE PER DAY
     Route: 048
  2. TOPAMAX [Concomitant]
  3. FOLIC ACID [Concomitant]

REACTIONS (1)
  - AMENORRHOEA [None]
